FAERS Safety Report 9745990 (Version 1)
Quarter: 2013Q4

REPORT INFORMATION
  Report Type: Spontaneous
  Country: CN (occurrence: CN)
  Receive Date: 20131211
  Receipt Date: 20131211
  Transmission Date: 20140711
  Serious: Yes (Hospitalization, Other)
  Sender: FDA-Public Use
  Company Number: PHHY2013CN141996

PATIENT
  Age: 43 Year
  Sex: Male

DRUGS (1)
  1. CARBAMAZEPINE [Suspect]
     Indication: INSOMNIA
     Dosage: 0.1 G, QN FOR CONSECUTIVE 6 DAYS

REACTIONS (30)
  - Drug eruption [Recovered/Resolved]
  - Rash maculo-papular [Recovered/Resolved]
  - Pruritus [Recovered/Resolved]
  - Body temperature increased [Recovered/Resolved]
  - Skin lesion [Recovered/Resolved]
  - Skin swelling [Recovered/Resolved]
  - Throat tightness [Recovered/Resolved]
  - Pharyngeal oedema [Recovered/Resolved]
  - Dysphonia [Recovered/Resolved]
  - Dysphagia [Recovered/Resolved]
  - Nausea [Recovered/Resolved]
  - Vomiting [Recovered/Resolved]
  - Lip erosion [Recovered/Resolved]
  - Mucosal erosion [Recovered/Resolved]
  - Purpura [Unknown]
  - Scab [Unknown]
  - Scrotal ulcer [Recovered/Resolved]
  - Secretion discharge [Unknown]
  - Tonsillar hypertrophy [Recovered/Resolved]
  - Haemorrhage subcutaneous [Recovered/Resolved]
  - C-reactive protein increased [Unknown]
  - Lipoprotein (a) increased [Unknown]
  - Low density lipoprotein increased [Unknown]
  - Electrocardiogram ST segment abnormal [Unknown]
  - Urine analysis abnormal [Unknown]
  - Blood uric acid increased [Unknown]
  - Blood creatinine increased [Unknown]
  - Blood cholesterol increased [Unknown]
  - Blood triglycerides increased [Unknown]
  - Blood urea increased [Unknown]
